FAERS Safety Report 9865158 (Version 2)
Quarter: 2014Q1

REPORT INFORMATION
  Report Type: Spontaneous
  Country: US (occurrence: US)
  Receive Date: 20140203
  Receipt Date: 20140212
  Transmission Date: 20141002
  Serious: Yes (Other)
  Sender: FDA-Public Use
  Company Number: CHPA2014US001922

PATIENT
  Age: 79 Year
  Sex: Female

DRUGS (4)
  1. VOLTAREN GEL [Suspect]
     Indication: SKIN PAPILLOMA
     Dosage: 2 G, BID
     Route: 061
  2. VOLTAREN GEL [Suspect]
     Indication: OFF LABEL USE
  3. VOLTAREN GEL [Suspect]
     Indication: ARTHRITIS
  4. TAMOXIFEN [Concomitant]
     Indication: NEOPLASM MALIGNANT

REACTIONS (3)
  - Breast cancer [Recovered/Resolved]
  - Infection [Recovered/Resolved]
  - Drug dispensed to wrong patient [Unknown]
